FAERS Safety Report 5220421-7 (Version None)
Quarter: 2007Q1

REPORT INFORMATION
  Report Type: 
  Country: None (occurrence: None)
  Receive Date: 20070125
  Receipt Date: 20070110
  Transmission Date: 20070707
  Serious: Yes (Hospitalization, Other)
  Sender: FDA-Public Use
  Company Number: US-AMGEN-US200524

PATIENT
  Sex: Female

DRUGS (12)
  1. ENBREL [Suspect]
     Indication: RHEUMATOID ARTHRITIS
     Route: 058
     Dates: start: 20060522, end: 20060831
  2. ENBREL [Suspect]
     Route: 058
     Dates: start: 20061121, end: 20061121
  3. ENBREL [Suspect]
     Route: 058
     Dates: start: 20061205
  4. PREDNISONE TAB [Suspect]
     Route: 065
  5. METHOTREXATE [Concomitant]
     Route: 065
     Dates: start: 20060805, end: 20060822
  6. PLACQUENIL [Concomitant]
     Route: 065
  7. BENICAR [Concomitant]
     Route: 065
  8. MULTI-VITAMINS [Concomitant]
     Route: 065
  9. TOPROL-XL [Concomitant]
     Route: 065
  10. PRILOSEC [Concomitant]
     Route: 065
  11. TRAMADOL HCL [Concomitant]
     Route: 065
  12. OS-CAL [Concomitant]
     Route: 065

REACTIONS (26)
  - ACCIDENTAL OVERDOSE [None]
  - ANXIETY [None]
  - ASTHENIA [None]
  - ATRIAL TACHYCARDIA [None]
  - BACK PAIN [None]
  - CRYPTOGENIC ORGANISING PNEUMONIA [None]
  - DEEP VEIN THROMBOSIS [None]
  - DEHYDRATION [None]
  - DYSPNOEA [None]
  - ECCHYMOSIS [None]
  - EYE HAEMORRHAGE [None]
  - FATIGUE [None]
  - FEELING JITTERY [None]
  - GASTROINTESTINAL HAEMORRHAGE [None]
  - HEPATOMEGALY [None]
  - HYPERTENSION [None]
  - INFECTED CYST [None]
  - INSOMNIA [None]
  - PILONIDAL CYST [None]
  - PNEUMONIA [None]
  - PULMONARY EMBOLISM [None]
  - RENAL FAILURE ACUTE [None]
  - RHEUMATOID LUNG [None]
  - SEPSIS SYNDROME [None]
  - SPINAL FRACTURE [None]
  - TREMOR [None]
